FAERS Safety Report 8618344 (Version 3)
Quarter: 2012Q4

REPORT INFORMATION
  Report Type: 
  Country: US (occurrence: US)
  Receive Date: 20120615
  Receipt Date: 20121004
  Transmission Date: 20130627
  Serious: Yes (Other)
  Sender: FDA-Public Use
  Company Number: US-RB-041312-12

PATIENT
  Age: 54 Year
  Sex: Male

DRUGS (14)
  1. SUBOXONE FILM [Suspect]
     Dosage: Dosing details unknown
     Route: 060
     Dates: start: 2011, end: 2012
  2. SUBOXONE FILM [Suspect]
     Dosage: 1 - 1 1/2 strips per day/prescribed 2 films per day
     Route: 060
     Dates: start: 201206
  3. SUBOXONE FILM [Suspect]
     Dosage: Suboxone film;
     Route: 060
     Dates: start: 201205, end: 2012
  4. SUBOXONE FILM [Suspect]
     Indication: DRUG DEPENDENCE
     Dosage: Suboxone film; Tapering doses
     Route: 060
     Dates: start: 2012
  5. HEROIN [Suspect]
     Indication: DRUG DEPENDENCE
     Dosage: Dose details not provided
     Route: 065
     Dates: end: 201206
  6. KLONOPIN [Concomitant]
     Indication: ANXIETY
     Route: 065
     Dates: end: 201206
  7. KLONOPIN [Concomitant]
     Indication: PANIC ATTACK
     Dosage: takes 2 mg three times daily
     Route: 065
  8. GENERIC PROZAC [Concomitant]
     Indication: DEPRESSION
     Route: 065
  9. LOVASTATIN [Concomitant]
     Indication: HYPERTENSION
     Route: 065
  10. FUROSEMIDE [Concomitant]
     Indication: HYPERTENSION
     Route: 065
  11. LISINOPRIL [Concomitant]
     Indication: HYPERTENSION
     Route: 065
  12. MULTI-VITAMIN [Concomitant]
     Indication: MEDICAL DIET
     Dosage: Dose details not provided
     Route: 065
  13. ASPIRIN [Concomitant]
     Indication: PROPHYLAXIS
     Route: 065
  14. ATENOLOL [Concomitant]
     Indication: HYPERTENSION
     Route: 065

REACTIONS (10)
  - Hepatic cirrhosis [Not Recovered/Not Resolved]
  - Hepatitis C [Not Recovered/Not Resolved]
  - Substance abuse [Recovered/Resolved]
  - Wrong technique in drug usage process [Not Recovered/Not Resolved]
  - Vomiting [Recovered/Resolved]
  - Diarrhoea [Recovered/Resolved]
  - Hepatic enzyme increased [Not Recovered/Not Resolved]
  - Poor quality sleep [Not Recovered/Not Resolved]
  - Infection [Recovered/Resolved]
  - Underdose [Not Recovered/Not Resolved]
